FAERS Safety Report 10247678 (Version 1)
Quarter: 2014Q2

REPORT INFORMATION
  Report Type: Spontaneous
  Country: FR (occurrence: FR)
  Receive Date: 20140619
  Receipt Date: 20140619
  Transmission Date: 20141212
  Serious: Yes (Hospitalization)
  Sender: FDA-Public Use
  Company Number: FR-PFIZER INC-2014166450

PATIENT
  Age: 66 Year
  Sex: Female

DRUGS (10)
  1. AMLOR [Suspect]
     Dosage: 30 MG, UNK
     Route: 048
     Dates: start: 20140523, end: 20140523
  2. METFORMIN HCL [Suspect]
     Dosage: 5 G, UNK
     Route: 048
     Dates: start: 20140523, end: 20140523
  3. SEROPLEX [Suspect]
     Dosage: 40 MG, UNK
     Route: 048
     Dates: start: 20140523, end: 20140523
  4. TEMESTA [Suspect]
     Dosage: 35 MG, UNK
     Dates: start: 20140523, end: 20140523
  5. BROMAZEPAM [Suspect]
     Dosage: UNK
     Route: 048
  6. TERCIAN [Concomitant]
  7. MICARDIS [Concomitant]
  8. BISOPROLOL [Concomitant]
     Dosage: 40 MG, UNK
     Dates: start: 20140523, end: 20140523
  9. TAHOR [Concomitant]
     Dosage: 20 MG, UNK
     Dates: start: 20140523, end: 20140523
  10. NOVONORM [Concomitant]

REACTIONS (5)
  - Intentional overdose [Recovered/Resolved]
  - Coma [Recovered/Resolved]
  - Hypotension [Recovered/Resolved]
  - Bradycardia [Recovered/Resolved]
  - Hypoxia [Recovered/Resolved]
